FAERS Safety Report 23473700 (Version 1)
Quarter: 2024Q1

REPORT INFORMATION
  Report Type: Spontaneous
  Country: US (occurrence: US)
  Receive Date: 20240203
  Receipt Date: 20240203
  Transmission Date: 20240410
  Serious: Yes (Other)
  Sender: FDA-Public Use
  Company Number: US-NOVITIUMPHARMA-2024USNVP00109

PATIENT
  Age: 27 Year
  Sex: Female

DRUGS (4)
  1. PREDNISONE [Suspect]
     Active Substance: PREDNISONE
     Indication: Status migrainosus
  2. VALPROATE [Concomitant]
     Active Substance: VALPROIC ACID
     Indication: Status migrainosus
  3. AMITRIPTYLINE [Concomitant]
     Active Substance: AMITRIPTYLINE
     Indication: Status migrainosus
  4. TOPIRAMATE [Concomitant]
     Active Substance: TOPIRAMATE
     Indication: Status migrainosus

REACTIONS (2)
  - Fat embolism syndrome [Unknown]
  - Sickle cell anaemia with crisis [Unknown]
